FAERS Safety Report 7120279-5 (Version None)
Quarter: 2010Q4

REPORT INFORMATION
  Report Type: 
  Country: None (occurrence: None)
  Receive Date: 20101123
  Receipt Date: 20101111
  Transmission Date: 20110411
  Serious: Yes (Hospitalization, Other)
  Sender: FDA-Public Use
  Company Number: ES-ELI_LILLY_AND_COMPANY-ES201011003601

PATIENT
  Sex: Female

DRUGS (10)
  1. FORTEO [Suspect]
     Indication: OSTEOPOROSIS
     Dosage: 20 UG, DAILY (1/D)
     Route: 058
     Dates: start: 20101015, end: 20101107
  2. CITALOPRAM HYDROBROMIDE [Concomitant]
     Indication: DEPRESSION
     Dosage: 20 MG, EACH MORNING
     Route: 048
  3. DEPRAX [Concomitant]
     Dosage: 100 MG, EACH EVENING
     Route: 048
  4. ARICEPT [Concomitant]
     Indication: DEMENTIA ALZHEIMER'S TYPE
     Dosage: 5 MG, EACH EVENING
     Route: 048
  5. IBUPROFEN [Concomitant]
     Indication: PAIN
     Dosage: UNK, EVERY 8 HRS
     Route: 048
  6. DIAMICRON [Concomitant]
     Indication: DIABETES MELLITUS
     Dosage: UNK, EACH MORNING
     Route: 048
  7. ATORVASTATINA [Concomitant]
     Indication: BLOOD CHOLESTEROL
     Dosage: 20 MG, EACH EVENING
     Route: 048
  8. CALCIO [Concomitant]
     Indication: BLOOD CALCIUM
     Dosage: UNK, DAILY (1/D)
     Route: 048
  9. PANTOPRAZOLE SODIUM [Concomitant]
     Indication: PROPHYLAXIS
     Dosage: 20 MG, EACH MORNING
     Route: 048
  10. LORAZEPAM [Concomitant]
     Dosage: UNK, EACH EVENING
     Route: 048

REACTIONS (1)
  - CEREBRAL HAEMORRHAGE [None]
